FAERS Safety Report 5487773-4 (Version None)
Quarter: 2007Q3

REPORT INFORMATION
  Report Type: 
  Country: None (occurrence: None)
  Receive Date: 20070925
  Receipt Date: 20070802
  Transmission Date: 20080115
  Serious: No
  Sender: FDA-Public Use
  Company Number: 2007US001816

PATIENT
  Age: 39 Year
  Sex: Female

DRUGS (13)
  1. VESICARE [Suspect]
     Indication: POLLAKIURIA
     Dosage: 5 MG; 5 MG,BID,ORAL
     Dates: start: 20070701
  2. SKELAXIN [Concomitant]
  3. LAMICTAL [Concomitant]
  4. LOVASTATIN [Concomitant]
  5. CYMBALTA [Concomitant]
  6. ABILIFY [Concomitant]
  7. TOPAMAX [Concomitant]
  8. SEROQUEL [Concomitant]
  9. BUSPIRONE HCL [Concomitant]
  10. ZOLOFT [Concomitant]
  11. PREVACID [Concomitant]
  12. FUROSEMIDE (FUROSEMIDE SODIUM) [Concomitant]
  13. POTASSIUM (POTASSIUM CHLORIDE) [Concomitant]

REACTIONS (5)
  - CHEST PAIN [None]
  - DIZZINESS [None]
  - FEELING ABNORMAL [None]
  - LETHARGY [None]
  - POLLAKIURIA [None]
